FAERS Safety Report 26061534 (Version 1)
Quarter: 2025Q4

REPORT INFORMATION
  Report Type: Report from Study
  Country: JP (occurrence: JP)
  Receive Date: 20251118
  Receipt Date: 20251118
  Transmission Date: 20260117
  Serious: Yes (Death, Other)
  Sender: JOHNSON AND JOHNSON
  Company Number: JP-JNJFOC-20230800098

PATIENT
  Age: 42 Year
  Sex: Female
  Weight: 35.6 kg

DRUGS (20)
  1. OPSUMIT [Suspect]
     Active Substance: MACITENTAN
     Indication: Pulmonary arterial hypertension
     Route: 048
     Dates: start: 201709, end: 201712
  2. OPSUMIT [Suspect]
     Active Substance: MACITENTAN
     Indication: Pulmonary arterial hypertension
     Route: 048
     Dates: start: 20170814, end: 201712
  3. UPTRAVI [Suspect]
     Active Substance: SELEXIPAG
     Indication: Pulmonary arterial hypertension
     Route: 048
     Dates: start: 20180919, end: 20180928
  4. UPTRAVI [Suspect]
     Active Substance: SELEXIPAG
     Route: 048
     Dates: start: 20180919, end: 20180920
  5. UPTRAVI [Suspect]
     Active Substance: SELEXIPAG
     Route: 048
     Dates: start: 20180921, end: 20181119
  6. EPOPROSTENOL SODIUM [Suspect]
     Active Substance: EPOPROSTENOL SODIUM
     Indication: Pulmonary arterial hypertension
     Dosage: DOSE UNKNOWN, GRADUALLY INCREASED
     Route: 042
     Dates: start: 20190423, end: 2019
  7. EPOPROSTENOL SODIUM [Suspect]
     Active Substance: EPOPROSTENOL SODIUM
     Dosage: DOSE UNKNOWN
     Route: 042
     Dates: start: 2019, end: 20191126
  8. EPOPROSTENOL SODIUM [Suspect]
     Active Substance: EPOPROSTENOL SODIUM
     Dosage: DURATION 16 MONTHS, DOSE UNKNOWN
     Route: 042
  9. ADCIRCA [Suspect]
     Active Substance: TADALAFIL
     Indication: Pulmonary arterial hypertension
     Route: 048
     Dates: start: 20170814
  10. ADCIRCA [Suspect]
     Active Substance: TADALAFIL
     Route: 048
     Dates: start: 2017
  11. ADCIRCA [Suspect]
     Active Substance: TADALAFIL
     Route: 048
     Dates: start: 20180904
  12. ADEMPAS [Suspect]
     Active Substance: RIOCIGUAT
     Indication: Product used for unknown indication
     Dosage: DOSE UNKNOWN
     Route: 048
     Dates: start: 20180904
  13. AMBRISENTAN [Concomitant]
     Active Substance: AMBRISENTAN
     Indication: Pulmonary arterial hypertension
     Route: 048
     Dates: start: 201712
  14. TREPROSTINIL [Concomitant]
     Active Substance: TREPROSTINIL
     Indication: Pulmonary arterial hypertension
     Dosage: DOSE UNKNOWN, GRADUALLY INCREASED
     Route: 058
     Dates: end: 201911
  15. TREPROSTINIL [Concomitant]
     Active Substance: TREPROSTINIL
     Dosage: DOSE UNKNOWN, GRADUALLY INCREASED
     Route: 058
     Dates: start: 201911
  16. TREPROSTINIL [Concomitant]
     Active Substance: TREPROSTINIL
     Dosage: DOSE UNKNOWN, GRADUALLY INCREASED
     Route: 058
     Dates: end: 201904
  17. AMBRISENTAN [Concomitant]
     Active Substance: AMBRISENTAN
     Indication: Product used for unknown indication
     Dates: start: 201712
  18. TOLVAPTAN [Concomitant]
     Active Substance: TOLVAPTAN
     Indication: Cardiac failure chronic
     Route: 048
     Dates: start: 20180919
  19. SODIUM FERROUS CITRATE [FERRIC SODIUM CITRATE] [Concomitant]
     Indication: Right ventricular failure
     Route: 048
     Dates: start: 20180919, end: 201902
  20. SODIUM FERROUS CITRATE [Concomitant]
     Active Substance: SODIUM FERROUS CITRATE
     Indication: Product used for unknown indication
     Dates: start: 201902

REACTIONS (11)
  - Gastrointestinal haemorrhage [Fatal]
  - Shock haemorrhagic [Fatal]
  - Haemolytic anaemia [Not Recovered/Not Resolved]
  - Cardiac failure high output [Recovered/Resolved]
  - Right ventricular failure [Unknown]
  - Hepatic arteriovenous malformation [Unknown]
  - Pancytopenia [Unknown]
  - Cardiac failure chronic [Unknown]
  - Epistaxis [Recovering/Resolving]
  - Gastrointestinal disorder [Unknown]
  - Therapeutic product effect incomplete [Unknown]

NARRATIVE: CASE EVENT DATE: 20171201
